FAERS Safety Report 4681129-X (Version None)
Quarter: 2005Q2

REPORT INFORMATION
  Report Type: 
  Country: None (occurrence: None)
  Receive Date: 20050601
  Receipt Date: 20050517
  Transmission Date: 20051028
  Serious: Yes (Hospitalization)
  Sender: FDA-Public Use
  Company Number: USA050598339

PATIENT
  Age: 31 Year
  Sex: Female

DRUGS (1)
  1. HUMALOG [Suspect]
     Indication: DIABETES MELLITUS
     Dates: start: 20010801

REACTIONS (7)
  - BLOOD GLUCOSE INCREASED [None]
  - DRUG EXPOSURE DURING PREGNANCY [None]
  - LACTATION DISORDER [None]
  - MASTITIS [None]
  - MEDICAL DEVICE COMPLICATION [None]
  - PREGNANCY [None]
  - UNDERDOSE [None]
